FAERS Safety Report 11988482 (Version 2)
Quarter: 2016Q4

REPORT INFORMATION
  Report Type: Spontaneous
  Country: GB (occurrence: GB)
  Receive Date: 20160202
  Receipt Date: 20161125
  Transmission Date: 20170206
  Serious: Yes (Other)
  Sender: FDA-Public Use
  Company Number: GB-JNJFOC-20160120674

PATIENT
  Sex: Male

DRUGS (1)
  1. SIMPONI [Suspect]
     Active Substance: GOLIMUMAB
     Indication: PRODUCT USED FOR UNKNOWN INDICATION
     Dosage: 18TH OF EACH MONTH
     Route: 058

REACTIONS (6)
  - Osteoarthritis [Unknown]
  - Ankylosing spondylitis [Unknown]
  - Chondropathy [Unknown]
  - Sleep apnoea syndrome [Unknown]
  - Pain in jaw [Unknown]
  - Drug ineffective [Unknown]
